FAERS Safety Report 10564073 (Version 1)
Quarter: 2014Q4

REPORT INFORMATION
  Report Type: Spontaneous
  Country: DE (occurrence: DE)
  Receive Date: 20141104
  Receipt Date: 20141104
  Transmission Date: 20150529
  Serious: Yes (Other)
  Sender: FDA-Public Use
  Company Number: GXKR2014DE004034

PATIENT

DRUGS (1)
  1. SERTRALINE [Suspect]
     Active Substance: SERTRALINE HYDROCHLORIDE
     Indication: DEPRESSION
     Dosage: 100 MG, UNK
     Route: 064

REACTIONS (3)
  - Serum ferritin increased [Not Recovered/Not Resolved]
  - Blood bilirubin increased [Unknown]
  - Failure to thrive [Recovered/Resolved]

NARRATIVE: CASE EVENT DATE: 20130529
